FAERS Safety Report 24349836 (Version 1)
Quarter: 2024Q3

REPORT INFORMATION
  Report Type: Spontaneous
  Country: JP (occurrence: JP)
  Receive Date: 20240923
  Receipt Date: 20240923
  Transmission Date: 20241016
  Serious: No
  Sender: ROCHE
  Company Number: JP-CHUGAI-2024002251

PATIENT
  Age: 2 Year
  Sex: Female

DRUGS (2)
  1. TAMIFLU [Suspect]
     Active Substance: OSELTAMIVIR PHOSPHATE
     Indication: Product used for unknown indication
     Route: 065
     Dates: start: 20240122
  2. BIOFERMIN [BIFIDOBACTERIUM BIFIDUM] [Concomitant]
     Indication: Diarrhoea
     Dosage: UNK

REACTIONS (2)
  - Urine output decreased [Unknown]
  - Face oedema [Recovered/Resolved]
